FAERS Safety Report 25397219 (Version 4)
Quarter: 2025Q2

REPORT INFORMATION
  Report Type: Report from Study
  Country: FR (occurrence: FR)
  Receive Date: 20250604
  Receipt Date: 20250630
  Transmission Date: 20250716
  Serious: Yes (Other)
  Sender: MYLAN
  Company Number: FR-ASTELLAS-2025-AER-027708

PATIENT
  Age: 74 Year
  Sex: Male

DRUGS (10)
  1. OXALIPLATIN [Suspect]
     Active Substance: OXALIPLATIN
     Indication: Oesophageal adenocarcinoma
  2. FLUOROURACIL [Suspect]
     Active Substance: FLUOROURACIL
     Indication: Oesophageal adenocarcinoma
  3. LEVOLEUCOVORIN CALCIUM [Suspect]
     Active Substance: LEVOLEUCOVORIN CALCIUM
     Indication: Oesophageal adenocarcinoma
  4. ZOLBETUXIMAB [Suspect]
     Active Substance: ZOLBETUXIMAB
     Indication: Oesophageal adenocarcinoma
     Dates: start: 20250415, end: 20250415
  5. ZOLBETUXIMAB [Suspect]
     Active Substance: ZOLBETUXIMAB
     Dosage: 400 MILLIGRAM/SQ. METER, BIWEEKLY (A MAINTENANCE DOSE OF 400 MG/ M? Q2W)
     Dates: start: 20250428, end: 20250428
  6. ZOLBETUXIMAB [Suspect]
     Active Substance: ZOLBETUXIMAB
     Dosage: 400 MILLIGRAM/SQ. METER, BIWEEKLY (A MAINTENANCE DOSE OF 400 MG/ M? Q2W)
     Dates: start: 20250515, end: 20250515
  7. ZOLBETUXIMAB [Suspect]
     Active Substance: ZOLBETUXIMAB
  8. ZOLBETUXIMAB [Suspect]
     Active Substance: ZOLBETUXIMAB
     Dosage: 400 MILLIGRAM/SQ. METER, BIWEEKLY (A MAINTENANCE DOSE OF 400 MG/ M? Q2W)
  9. ELOXATIN [Suspect]
     Active Substance: OXALIPLATIN
     Indication: Oesophageal adenocarcinoma
     Dosage: 150 MILLIGRAM, Q2W
     Dates: start: 20250429, end: 20250429
  10. ELOXATIN [Suspect]
     Active Substance: OXALIPLATIN
     Indication: Gastric cancer

REACTIONS (5)
  - Angioedema [Recovered/Resolved]
  - Hypersensitivity [Recovered/Resolved]
  - Blood pressure increased [Unknown]
  - Nausea [Unknown]
  - Product administration error [Unknown]
